FAERS Safety Report 18382808 (Version 3)
Quarter: 2020Q4

REPORT INFORMATION
  Report Type: Spontaneous
  Country: US (occurrence: US)
  Receive Date: 20201014
  Receipt Date: 20201021
  Transmission Date: 20210114
  Serious: No
  Sender: FDA-Public Use
  Company Number: US-PFIZER INC-2020395046

PATIENT
  Age: 47 Year
  Sex: Female

DRUGS (1)
  1. BOSULIF [Suspect]
     Active Substance: BOSUTINIB MONOHYDRATE
     Indication: CHRONIC MYELOID LEUKAEMIA
     Dosage: 1000 MG, DAILY(TAKE 2 TABLETS BY MOUTH EVERY DAY WITH FOOD, SWALLOW WHOLE, DO NOT BREAK TABLET)
     Route: 048
     Dates: start: 201911

REACTIONS (7)
  - Fatigue [Unknown]
  - Blood count abnormal [Unknown]
  - Asthenia [Unknown]
  - Diarrhoea [Unknown]
  - Neoplasm progression [Unknown]
  - Contusion [Unknown]
  - Prescribed overdose [Unknown]

NARRATIVE: CASE EVENT DATE: 201911
